FAERS Safety Report 22524898 (Version 1)
Quarter: 2023Q2

REPORT INFORMATION
  Report Type: Spontaneous
  Country: US (occurrence: US)
  Receive Date: 20230606
  Receipt Date: 20230606
  Transmission Date: 20230722
  Serious: Yes (Hospitalization, Other)
  Sender: FDA-Public Use
  Company Number: US-STERISCIENCE B.V.-2023-ST-001411

PATIENT
  Age: 65 Year
  Sex: Female

DRUGS (3)
  1. BUPIVACAINE [Suspect]
     Active Substance: BUPIVACAINE
     Indication: Local anaesthesia
     Dosage: 5 MILLILITER, SOLUTION WAS INJECTED WITH A DISPOSABLE 25-GAUGE, 1.25-INCH BLUNT NEEDLE INTO THE LEFT
     Route: 042
  2. LIDOCAINE [Suspect]
     Active Substance: LIDOCAINE
     Indication: Local anaesthesia
     Dosage: 5 MILLILITER, SOLUTION WAS INJECTED WITH A DISPOSABLE 25-GAUGE, 1.25-INCH BLUNT NEEDLE INTO THE LEFT
     Route: 042
  3. HYALURONIDASE [Suspect]
     Active Substance: HYALURONIDASE
     Indication: Nerve block
     Dosage: 200 IU INTERNATIONAL UNIT(S), 200 UNITS; SOLUTION WAS INJECTED WITH A DISPOSABLE 25-GAUGE, 1.25-INCH
     Route: 042

REACTIONS (1)
  - Purtscher retinopathy [Recovered/Resolved]
